FAERS Safety Report 19435871 (Version 1)
Quarter: 2021Q2

REPORT INFORMATION
  Report Type: Spontaneous
  Country: BR (occurrence: BR)
  Receive Date: 20210618
  Receipt Date: 20210618
  Transmission Date: 20210717
  Serious: Yes (Other)
  Sender: FDA-Public Use
  Company Number: BR-BAYER-2021-158577

PATIENT
  Sex: Female

DRUGS (3)
  1. MIRENA [Interacting]
     Active Substance: LEVONORGESTREL
     Indication: MENSTRUAL DISORDER
  2. SYNTHROID [Interacting]
     Active Substance: LEVOTHYROXINE SODIUM
     Indication: HYPOTHYROIDISM
     Route: 065
  3. MIRENA [Suspect]
     Active Substance: LEVONORGESTREL
     Indication: ABDOMINAL PAIN
     Dosage: 20 ?G PER DAY, CONTINUOUSLY
     Route: 015

REACTIONS (6)
  - Hypothyroidism [Unknown]
  - Potentiating drug interaction [Unknown]
  - Autoimmune thyroiditis [Unknown]
  - Abdominal pain [Unknown]
  - Thyroid hormone replacement therapy [Unknown]
  - Menstrual disorder [Unknown]
